FAERS Safety Report 15215613 (Version 5)
Quarter: 2018Q3

REPORT INFORMATION
  Report Type: Spontaneous
  Country: US (occurrence: US)
  Receive Date: 20180730
  Receipt Date: 20180823
  Transmission Date: 20181010
  Serious: No
  Sender: FDA-Public Use
  Company Number: US-PFIZER INC-2018304101

PATIENT
  Age: 8 Year
  Sex: Male
  Weight: 36.29 kg

DRUGS (3)
  1. ZYRTEC [Concomitant]
     Active Substance: CETIRIZINE HYDROCHLORIDE
     Indication: HYPERSENSITIVITY
     Dosage: 10 MG, 1X/DAY (10MG BY MOUTH ONCE PER DAY)
     Route: 048
  2. EUCRISA [Suspect]
     Active Substance: CRISABOROLE
     Indication: ECZEMA
     Dosage: TWICE PER DAY, ON THE SPOTS
     Dates: start: 20180713, end: 201807
  3. EUCRISA [Suspect]
     Active Substance: CRISABOROLE
     Dosage: TWICE PER DAY, ON THE SPOTS
     Dates: start: 201807, end: 20180723

REACTIONS (2)
  - Application site pain [Recovered/Resolved]
  - Application site erythema [Recovered/Resolved]

NARRATIVE: CASE EVENT DATE: 201807
